FAERS Safety Report 6744399-X (Version None)
Quarter: 2010Q2

REPORT INFORMATION
  Report Type: 
  Country: None (occurrence: None)
  Receive Date: 20100527
  Receipt Date: 20100517
  Transmission Date: 20101027
  Serious: Yes (Other)
  Sender: FDA-Public Use
  Company Number: FR-PFIZER INC-2010034931

PATIENT
  Age: 88 Year
  Sex: Male

DRUGS (2)
  1. SUTENT [Suspect]
     Indication: ADENOCARCINOMA
     Dosage: 37.5 MG, 1X/DAY
     Dates: start: 20100101
  2. RIVOTRIL [Concomitant]
     Indication: MYOCLONUS
     Dosage: 2-3 DROPS A DAY
     Dates: start: 20000101

REACTIONS (6)
  - CONFUSIONAL STATE [None]
  - DEAFNESS [None]
  - DYSARTHRIA [None]
  - DYSGEUSIA [None]
  - HYPERSOMNIA [None]
  - VOMITING [None]
